FAERS Safety Report 18799704 (Version 4)
Quarter: 2023Q2

REPORT INFORMATION
  Report Type: Spontaneous
  Country: US (occurrence: US)
  Receive Date: 20210128
  Receipt Date: 20230414
  Transmission Date: 20230721
  Serious: Yes (Hospitalization, Other)
  Sender: FDA-Public Use
  Company Number: US-GILEAD-2021-0513359

PATIENT
  Age: 58 Year
  Sex: Male
  Weight: 90.703 kg

DRUGS (65)
  1. TRUVADA [Suspect]
     Active Substance: EMTRICITABINE\TENOFOVIR DISOPROXIL FUMARATE
     Indication: HIV infection
     Dosage: UNK
     Route: 048
     Dates: start: 2004
  2. TRUVADA [Suspect]
     Active Substance: EMTRICITABINE\TENOFOVIR DISOPROXIL FUMARATE
     Dosage: UNK
     Route: 048
     Dates: start: 2005, end: 20170627
  3. TRUVADA [Suspect]
     Active Substance: EMTRICITABINE\TENOFOVIR DISOPROXIL FUMARATE
     Dosage: UNK
     Route: 048
     Dates: start: 2006, end: 201707
  4. DESCOVY [Concomitant]
     Active Substance: EMTRICITABINE\TENOFOVIR ALAFENAMIDE FUMARATE
  5. INTELENCE [Concomitant]
     Active Substance: ETRAVIRINE
  6. ISENTRESS [Concomitant]
     Active Substance: RALTEGRAVIR POTASSIUM
  7. SELZENTRY [Concomitant]
     Active Substance: MARAVIROC
  8. ABILIFY [Concomitant]
     Active Substance: ARIPIPRAZOLE
  9. ALINIA [Concomitant]
     Active Substance: NITAZOXANIDE
  10. AMOXICILLIN\CLAVULANATE POTASSIUM [Concomitant]
     Active Substance: AMOXICILLIN\CLAVULANATE POTASSIUM
  11. AMOXICILLIN [Concomitant]
     Active Substance: AMOXICILLIN
  12. AVELOX [Concomitant]
     Active Substance: MOXIFLOXACIN HYDROCHLORIDE
  13. AZITHROMYCIN [Concomitant]
     Active Substance: AZITHROMYCIN
  14. BALOXAVIR MARBOXIL [Concomitant]
     Active Substance: BALOXAVIR MARBOXIL
  15. BENZONATATE [Concomitant]
     Active Substance: BENZONATATE
  16. CARISOPRODOL [Concomitant]
     Active Substance: CARISOPRODOL
  17. CEFPODOXIME [Concomitant]
     Active Substance: CEFPODOXIME
  18. CEPHALEXIN [Concomitant]
     Active Substance: CEPHALEXIN
  19. CHLORHEXIDINE [Concomitant]
     Active Substance: CHLORHEXIDINE
  20. CIPROFLOXACIN [Concomitant]
     Active Substance: CIPROFLOXACIN
  21. COLCRYS [Concomitant]
     Active Substance: COLCHICINE
  22. CYCLOBENZAPRINE [Concomitant]
     Active Substance: CYCLOBENZAPRINE
  23. DEXAMETHASONE [Concomitant]
     Active Substance: DEXAMETHASONE
  24. DIAZEPAM [Concomitant]
     Active Substance: DIAZEPAM
  25. ALUMINUM HYDROXIDE\DICYCLOMINE HYDROCHLORIDE\MAGNESIUM OXIDE [Concomitant]
     Active Substance: ALUMINUM HYDROXIDE\DICYCLOMINE HYDROCHLORIDE\MAGNESIUM OXIDE
  26. DIPHENOXYLATE [Concomitant]
     Active Substance: DIPHENOXYLATE
  27. DOXYCYCLINE [Concomitant]
     Active Substance: DOXYCYCLINE
  28. FINASTERIDE [Concomitant]
     Active Substance: FINASTERIDE
  29. FLUDROCORTISONE [Concomitant]
     Active Substance: FLUDROCORTISONE
  30. FLUOXETINE [Concomitant]
     Active Substance: FLUOXETINE HYDROCHLORIDE
  31. FOLIC ACID [Concomitant]
     Active Substance: FOLIC ACID
  32. GABAPENTIN [Concomitant]
     Active Substance: GABAPENTIN
  33. GAVILYTE - C [Concomitant]
     Active Substance: POLYETHYLENE GLYCOL 3350\POTASSIUM CHLORIDE\SODIUM BICARBONATE\SODIUM CHLORIDE\SODIUM SULFATE
  34. GOLYTELY [Concomitant]
     Active Substance: POLYETHYLENE GLYCOL 3350\POTASSIUM CHLORIDE\SODIUM BICARBONATE\SODIUM CHLORIDE\SODIUM SULFATE
  35. ITRACONAZOLE [Concomitant]
     Active Substance: ITRACONAZOLE
  36. LEVITRA [Concomitant]
     Active Substance: VARDENAFIL HYDROCHLORIDE
  37. LEVOFLOXACIN [Concomitant]
     Active Substance: LEVOFLOXACIN
  38. LIDOCAINE [Concomitant]
     Active Substance: LIDOCAINE
  39. LOPERAMIDE [Concomitant]
     Active Substance: LOPERAMIDE
  40. LUNESTA [Concomitant]
     Active Substance: ESZOPICLONE
  41. MELOXICAM [Concomitant]
     Active Substance: MELOXICAM
  42. METRONIDAZOLE [Concomitant]
     Active Substance: METRONIDAZOLE
  43. METHYLPREDNISOLONE [Concomitant]
     Active Substance: METHYLPREDNISOLONE
  44. MIDODRINE [Concomitant]
     Active Substance: MIDODRINE
  45. MIRTAZAPINE [Concomitant]
     Active Substance: MIRTAZAPINE
  46. NEOMYCIN [Concomitant]
     Active Substance: NEOMYCIN
  47. NEXIUM I.V. [Concomitant]
     Active Substance: ESOMEPRAZOLE SODIUM
  48. NORTRIPTYLINE [Concomitant]
     Active Substance: NORTRIPTYLINE
  49. NYSTATIN [Concomitant]
     Active Substance: NYSTATIN
  50. OMEPRAZOLE [Concomitant]
     Active Substance: OMEPRAZOLE
  51. ONDANSETRON [Concomitant]
     Active Substance: ONDANSETRON
  52. PEG [MACROGOL] [Concomitant]
  53. PERMETHRIN [Concomitant]
     Active Substance: PERMETHRIN
  54. PREDNISONE [Concomitant]
     Active Substance: PREDNISONE
  55. FLUTICASONE PROPIONATE [Concomitant]
     Active Substance: FLUTICASONE PROPIONATE
  56. SALICYLIC ACID [Concomitant]
     Active Substance: SALICYLIC ACID
  57. SULFAMETHOXAZOLE [Concomitant]
     Active Substance: SULFAMETHOXAZOLE
  58. SYMBICORT [Concomitant]
     Active Substance: BUDESONIDE\FORMOTEROL FUMARATE DIHYDRATE
  59. TEMAZEPAM [Concomitant]
     Active Substance: TEMAZEPAM
  60. TRAZODONE [Concomitant]
     Active Substance: TRAZODONE HYDROCHLORIDE
  61. VALACYCLOVIR [Concomitant]
     Active Substance: VALACYCLOVIR HYDROCHLORIDE
  62. VIAGRA [Concomitant]
     Active Substance: SILDENAFIL CITRATE
  63. VIIBRYD [Concomitant]
     Active Substance: VILAZODONE HYDROCHLORIDE
  64. NITROFURANTOIN [Concomitant]
     Active Substance: NITROFURANTOIN
  65. IPRATROPIUM [Concomitant]
     Active Substance: IPRATROPIUM

REACTIONS (15)
  - Ulna fracture [Not Recovered/Not Resolved]
  - Acute kidney injury [Not Recovered/Not Resolved]
  - Blood creatinine increased [Not Recovered/Not Resolved]
  - Chronic kidney disease [Not Recovered/Not Resolved]
  - Hyperkalaemia [Not Recovered/Not Resolved]
  - Nephrolithiasis [Unknown]
  - Renal failure [Unknown]
  - Bone density decreased [Unknown]
  - Pain [Not Recovered/Not Resolved]
  - Emotional distress [Not Recovered/Not Resolved]
  - Anxiety [Not Recovered/Not Resolved]
  - Anhedonia [Not Recovered/Not Resolved]
  - Osteoarthritis [Unknown]
  - Hypertension [Not Recovered/Not Resolved]
  - Osteopenia [Not Recovered/Not Resolved]

NARRATIVE: CASE EVENT DATE: 20130101
